FAERS Safety Report 4413115-9 (Version None)
Quarter: 2004Q3

REPORT INFORMATION
  Report Type: 
  Country: None (occurrence: None)
  Receive Date: 20040802
  Receipt Date: 20040802
  Transmission Date: 20050211
  Serious: Yes (Disabling, Other)
  Sender: FDA-Public Use
  Company Number: None

PATIENT
  Age: 40 Year
  Sex: Female
  Weight: 76.2043 kg

DRUGS (2)
  1. PAXIL [Suspect]
     Indication: ANXIETY
     Dosage: 25 MG 1 DAILY ORAL
     Route: 048
     Dates: start: 20040105, end: 20040706
  2. PAXIL [Suspect]
     Indication: PALPITATIONS
     Dosage: 25 MG 1 DAILY ORAL
     Route: 048
     Dates: start: 20040105, end: 20040706

REACTIONS (1)
  - DRUG WITHDRAWAL SYNDROME [None]
